FAERS Safety Report 23175186 (Version 2)
Quarter: 2023Q4

REPORT INFORMATION
  Report Type: Report from Study
  Country: US (occurrence: US)
  Receive Date: 20231112
  Receipt Date: 20231228
  Transmission Date: 20240110
  Serious: Yes (Hospitalization)
  Sender: FDA-Public Use
  Company Number: US-ALXN-202310GLO000445US

PATIENT
  Age: 27 Year
  Sex: Female
  Weight: 66 kg

DRUGS (13)
  1. SOLIRIS [Suspect]
     Active Substance: ECULIZUMAB
     Indication: Atypical haemolytic uraemic syndrome
     Dosage: 1200 MILLIGRAM
     Route: 042
     Dates: start: 20200703
  2. SOLIRIS [Suspect]
     Active Substance: ECULIZUMAB
     Indication: Pancreatitis acute
     Dosage: 0.2 MILLIGRAM, Q4H
     Route: 042
     Dates: start: 20230207, end: 20230211
  3. ULTOMIRIS [Suspect]
     Active Substance: RAVULIZUMAB-CWVZ
     Indication: Atypical haemolytic uraemic syndrome
     Dosage: 2700 MILIGRAM, UNK
     Route: 042
     Dates: start: 20190930, end: 20200508
  4. DILAUDID [Concomitant]
     Active Substance: HYDROMORPHONE HYDROCHLORIDE
     Indication: Pancreatitis acute
     Dosage: 0.2 MILLIGRAM, Q4H
     Route: 042
     Dates: start: 20230207, end: 20230211
  5. FENTANYL [Concomitant]
     Active Substance: FENTANYL\FENTANYL CITRATE
     Indication: Pancreatitis acute
     Dosage: 50 MICROGRAM, Q1H
     Route: 042
     Dates: start: 20230207, end: 20230207
  6. HYDROCODONE [Concomitant]
     Active Substance: HYDROCODONE
     Indication: Pancreatitis acute
     Dosage: 325 MILLIGRAM, Q4H
     Route: 042
     Dates: start: 20230207, end: 20230213
  7. PROTINEX [Concomitant]
     Indication: Abdominal pain upper
     Dosage: 40 MILLIGRAM, QD
     Route: 042
     Dates: start: 20230207, end: 20230213
  8. ZOFRAN [Concomitant]
     Active Substance: ONDANSETRON HYDROCHLORIDE
     Indication: Pancreatitis acute
     Dosage: 4 MILLIGRAM, PRN
     Route: 042
     Dates: start: 20230303, end: 20230306
  9. ZOFRAN [Concomitant]
     Active Substance: ONDANSETRON HYDROCHLORIDE
     Indication: Diabetic ketoacidosis
     Dosage: 4 MILLIGRAM, QD
     Route: 042
     Dates: start: 20230207, end: 20230213
  10. DEXTROSE [Concomitant]
     Active Substance: DEXTROSE\DEXTROSE MONOHYDRATE
     Indication: Diabetic ketoacidosis
     Dosage: 15 GRAM, SINGLE
     Route: 042
     Dates: start: 20230303, end: 20230303
  11. GLUCAGEN [Concomitant]
     Active Substance: GLUCAGON HYDROCHLORIDE
     Indication: Diabetic ketoacidosis
     Dosage: 1 GRAM, SINGLE
     Route: 042
     Dates: start: 20230303, end: 20230303
  12. INSULIN NOS [Concomitant]
     Active Substance: INSULIN NOS
     Indication: Diabetic ketoacidosis
     Dosage: 100 IU INTERNATIONAL UNIT(S), SINGLE
     Route: 042
     Dates: start: 20230303, end: 20230303
  13. LANTUS [Concomitant]
     Active Substance: INSULIN GLARGINE
     Indication: Diabetic ketoacidosis
     Dosage: 100 IU INTERNATIONAL UNIT(S), TID
     Route: 062
     Dates: start: 20230304, end: 20230306

REACTIONS (1)
  - Hyperglycaemia [Recovered/Resolved]

NARRATIVE: CASE EVENT DATE: 20230303
